FAERS Safety Report 11593293 (Version 1)
Quarter: 2015Q4

REPORT INFORMATION
  Report Type: Spontaneous
  Country: TR (occurrence: TR)
  Receive Date: 20151005
  Receipt Date: 20151005
  Transmission Date: 20160304
  Serious: Yes (Other)
  Sender: FDA-Public Use
  Company Number: TR-CIPLA LTD.-2015TR07696

PATIENT

DRUGS (3)
  1. LAMIVUDINE. [Suspect]
     Active Substance: LAMIVUDINE
     Dosage: 100 MG, QD
     Route: 064
  2. TELBIVUDINE [Suspect]
     Active Substance: TELBIVUDINE
     Dosage: 600 MG, QD
     Route: 064
  3. TENOFOVIR DISOPROXIL FUMARATE. [Suspect]
     Active Substance: TENOFOVIR DISOPROXIL FUMARATE
     Dosage: 300 MG, QD
     Route: 064

REACTIONS (2)
  - Hepatitis B e antigen positive [Unknown]
  - Foetal exposure during pregnancy [Unknown]
